FAERS Safety Report 12652415 (Version 1)
Quarter: 2016Q3

REPORT INFORMATION
  Report Type: Spontaneous
  Country: US (occurrence: US)
  Receive Date: 20160815
  Receipt Date: 20160815
  Transmission Date: 20161109
  Serious: No
  Sender: FDA-Public Use
  Company Number: US-PFIZER INC-2016342786

PATIENT
  Age: 66 Year
  Sex: Female

DRUGS (5)
  1. CELECOXIB. [Suspect]
     Active Substance: CELECOXIB
     Indication: BACK DISORDER
     Dosage: 200 MG, 1X/DAY
     Dates: start: 20160205, end: 201603
  2. CELECOXIB. [Suspect]
     Active Substance: CELECOXIB
     Indication: JOINT INJURY
     Dosage: 200 MG, 1X/DAY
     Dates: end: 201606
  3. CELEBREX [Concomitant]
     Active Substance: CELECOXIB
     Indication: BACK DISORDER
     Dosage: 200 MG, DAILY
     Dates: start: 2004
  4. CELEBREX [Concomitant]
     Active Substance: CELECOXIB
     Indication: JOINT INJURY
     Dosage: UNK
     Dates: start: 201512, end: 20160205
  5. CELEBREX [Concomitant]
     Active Substance: CELECOXIB
     Dosage: UNK
     Dates: start: 20160603

REACTIONS (2)
  - Dyspnoea [Recovered/Resolved]
  - Muscle spasms [Recovered/Resolved]
